FAERS Safety Report 8477590-5 (Version None)
Quarter: 2012Q2

REPORT INFORMATION
  Report Type: 
  Country: None (occurrence: None)
  Receive Date: 20120626
  Receipt Date: 20120626
  Transmission Date: 20120825
  Serious: Yes (Other)
  Sender: FDA-Public Use
  Company Number: None

PATIENT
  Age: 34 Year
  Sex: Female
  Weight: 95 kg

DRUGS (1)
  1. IOHEXOL, 240MG/ML, GE HEALTHCARE [Suspect]
     Indication: IMAGING PROCEDURE
     Dosage: 50 ONCE, IV
     Route: 042
     Dates: start: 20120525, end: 20120525

REACTIONS (3)
  - CHEST PAIN [None]
  - DYSPNOEA [None]
  - IMMEDIATE POST-INJECTION REACTION [None]
